FAERS Safety Report 13486219 (Version 1)
Quarter: 2017Q2

REPORT INFORMATION
  Report Type: Spontaneous
  Country: US (occurrence: US)
  Receive Date: 20170426
  Receipt Date: 20170426
  Transmission Date: 20170830
  Serious: No
  Sender: FDA-Public Use
  Company Number: US-ORPHAN EUROPE-1065886

PATIENT
  Age: 9 Year
  Sex: Male
  Weight: 26.31 kg

DRUGS (4)
  1. HOMINEX-2 [Concomitant]
  2. SEPTRA [Concomitant]
     Active Substance: SULFAMETHOXAZOLE\TRIMETHOPRIM
  3. MULTIVITAMIN [Concomitant]
     Active Substance: VITAMINS
  4. CYSTADANE [Suspect]
     Active Substance: BETAINE
     Indication: CYSTATHIONINE BETA-SYNTHASE DEFICIENCY
     Dates: start: 20140711

REACTIONS (2)
  - Inappropriate schedule of drug administration [None]
  - Pharyngitis streptococcal [Not Recovered/Not Resolved]

NARRATIVE: CASE EVENT DATE: 20140711
